FAERS Safety Report 7061239-2 (Version None)
Quarter: 2010Q4

REPORT INFORMATION
  Report Type: 
  Country: None (occurrence: None)
  Receive Date: 20101026
  Receipt Date: 20101019
  Transmission Date: 20110411
  Serious: No
  Sender: FDA-Public Use
  Company Number: US-PFIZER INC-2010132876

PATIENT
  Sex: Female
  Weight: 77.1 kg

DRUGS (5)
  1. GENOTROPIN [Suspect]
     Indication: GROWTH HORMONE DEFICIENCY
     Dosage: 0.3 MG, 1X/DAY
     Dates: start: 20101001
  2. LEVOTHYROXINE [Concomitant]
     Indication: HYPERTHYROIDISM
     Dosage: 25 UG, 1X/DAY
  3. AMBIEN [Concomitant]
     Indication: SLEEP DISORDER
     Dosage: 10 MG, 1X/DAY
  4. CYMBALTA [Concomitant]
     Indication: ANXIETY
     Dosage: 10 MG, UNK
  5. ZEGERID [Concomitant]
     Indication: GASTROOESOPHAGEAL REFLUX DISEASE
     Dosage: 40 MG, UNK

REACTIONS (1)
  - OEDEMA PERIPHERAL [None]
